FAERS Safety Report 25430457 (Version 1)
Quarter: 2025Q2

REPORT INFORMATION
  Report Type: Spontaneous
  Country: US (occurrence: None)
  Receive Date: 20250612
  Receipt Date: 20250612
  Transmission Date: 20250717
  Serious: Yes (Other)
  Sender: FDA-CTU
  Company Number: None

PATIENT
  Age: 46 Year
  Sex: Female
  Weight: 83.25 kg

DRUGS (2)
  1. CYANOCOBALAMIN\GLYCINE\TIRZEPATIDE [Suspect]
     Active Substance: CYANOCOBALAMIN\GLYCINE\TIRZEPATIDE
     Dates: start: 20250222, end: 20250611
  2. TURZEPATIDE [Concomitant]

REACTIONS (5)
  - Injection site swelling [None]
  - Injection site erythema [None]
  - Injection site pain [None]
  - Headache [None]
  - Abdominal pain upper [None]

NARRATIVE: CASE EVENT DATE: 20250611
